FAERS Safety Report 24994358 (Version 1)
Quarter: 2025Q1

REPORT INFORMATION
  Report Type: Report from Study
  Country: IN (occurrence: IN)
  Receive Date: 20250221
  Receipt Date: 20250221
  Transmission Date: 20250409
  Serious: Yes (Other)
  Sender: ROCHE
  Company Number: IN-ROCHE-10000041294

PATIENT
  Age: 75 Year
  Sex: Male

DRUGS (3)
  1. TECENTRIQ [Suspect]
     Active Substance: ATEZOLIZUMAB
     Indication: Lung adenocarcinoma
     Route: 040
     Dates: start: 20240514
  2. TECENTRIQ [Suspect]
     Active Substance: ATEZOLIZUMAB
     Route: 040
  3. TECENTRIQ [Suspect]
     Active Substance: ATEZOLIZUMAB
     Route: 040
     Dates: start: 20240514

REACTIONS (9)
  - Off label use [Unknown]
  - Chest pain [Unknown]
  - Oxygen saturation decreased [Unknown]
  - Metastases to lung [Unknown]
  - Cortisol increased [Unknown]
  - Metastases to lymph nodes [Unknown]
  - Lung neoplasm [Unknown]
  - Neoplasm [Unknown]
  - Nodule [Unknown]
